FAERS Safety Report 17801760 (Version 1)
Quarter: 2020Q2

REPORT INFORMATION
  Report Type: Spontaneous
  Country: US (occurrence: US)
  Receive Date: 20200518
  Receipt Date: 20200518
  Transmission Date: 20200714
  Serious: No
  Sender: FDA-Public Use
  Company Number: None

PATIENT
  Age: 53 Year
  Sex: Male
  Weight: 87.66 kg

DRUGS (9)
  1. MAGNESIUM OXIDE 420MG PO BID [Concomitant]
     Dates: start: 20200506, end: 20200518
  2. ASCORBIC ACID 1500MG PO BID [Concomitant]
     Dates: start: 20200517, end: 20200518
  3. CHOLECALCIFEROL 50MCG PO Q24H [Concomitant]
     Dates: start: 20200518, end: 20200518
  4. INSULIN GLARGINE 12 UNITS SC QHS [Concomitant]
     Dates: start: 20200512, end: 20200517
  5. REMDESIVIR. [Suspect]
     Active Substance: REMDESIVIR
     Indication: COVID-19
     Route: 042
     Dates: start: 20200512, end: 20200517
  6. INSULIN ASPART SLIDING SCALE TID AC [Concomitant]
     Dates: start: 20200429, end: 20200518
  7. SENNA 17.2MG PO DAILY [Concomitant]
     Dates: start: 20200508, end: 20200518
  8. ZINC CAPSULE 50MG PO Q24H [Concomitant]
     Dates: start: 20200518, end: 20200518
  9. ENOXAPARIN 30MG SC Q12H [Concomitant]
     Dates: start: 20200501, end: 20200518

REACTIONS (6)
  - Clinical trial participant [None]
  - Leukopenia [None]
  - Lymphocyte percentage increased [None]
  - Product use in unapproved indication [None]
  - Differential white blood cell count abnormal [None]
  - Neutrophil percentage decreased [None]

NARRATIVE: CASE EVENT DATE: 20200517
